FAERS Safety Report 5968791-6 (Version None)
Quarter: 2008Q4

REPORT INFORMATION
  Report Type: 
  Country: None (occurrence: None)
  Receive Date: 20081121
  Receipt Date: 20081121
  Transmission Date: 20090506
  Serious: Yes (Death)
  Sender: FDA-Public Use
  Company Number: None

PATIENT
  Age: 95 Year
  Sex: Female
  Weight: 43.0917 kg

DRUGS (1)
  1. ENOXAPARIN SODIUM [Suspect]
     Indication: THROMBOSIS PROPHYLAXIS
     Dates: start: 20080628, end: 20080629

REACTIONS (5)
  - DISORIENTATION [None]
  - DRUG HYPERSENSITIVITY [None]
  - FEELING HOT [None]
  - PNEUMOTHORAX [None]
  - PRODUCT CONTAMINATION [None]
